FAERS Safety Report 4899782-4 (Version None)
Quarter: 2006Q1

REPORT INFORMATION
  Report Type: 
  Country: None (occurrence: None)
  Receive Date: 20060118
  Receipt Date: 20050505
  Transmission Date: 20060701
  Serious: No
  Sender: FDA-Public Use
  Company Number: 2005000876

PATIENT
  Age: 72 Year
  Sex: Female

DRUGS (4)
  1. TARCEVA [Suspect]
     Indication: NON-SMALL CELL LUNG CANCER
     Dosage: 150 MG (QD), ORAL
     Route: 048
     Dates: start: 20050501, end: 20050509
  2. POTASSIUM (POTASSIUM) [Concomitant]
  3. LASIX [Concomitant]
  4. CARDIZEM [Concomitant]

REACTIONS (12)
  - ABDOMINAL PAIN UPPER [None]
  - CONJUNCTIVITIS [None]
  - DECREASED APPETITE [None]
  - DIARRHOEA [None]
  - DRY SKIN [None]
  - DYSGEUSIA [None]
  - FATIGUE [None]
  - HAIR GROWTH ABNORMAL [None]
  - RASH [None]
  - SKIN INFECTION [None]
  - SKIN LESION [None]
  - WEIGHT DECREASED [None]
